FAERS Safety Report 13055243 (Version 1)
Quarter: 2016Q4

REPORT INFORMATION
  Report Type: Spontaneous
  Country: US (occurrence: US)
  Receive Date: 20161222
  Receipt Date: 20161222
  Transmission Date: 20170207
  Serious: Yes (Hospitalization)
  Sender: FDA-Public Use
  Company Number: US-ASTRAZENECA-2016SF33431

PATIENT
  Sex: Male
  Weight: 9.4 kg

DRUGS (6)
  1. SYNAGIS [Suspect]
     Active Substance: PALIVIZUMAB
     Indication: TRACHEITIS
     Route: 030
     Dates: end: 20161212
  2. FLOVENT [Concomitant]
     Active Substance: FLUTICASONE PROPIONATE
     Indication: RESPIRATORY DISORDER
     Dosage: 2, TWO TIMES A DAY
     Route: 055
     Dates: start: 20161212
  3. SYNAGIS [Suspect]
     Active Substance: PALIVIZUMAB
     Indication: LARYNGEAL STENOSIS
     Route: 030
     Dates: end: 20161212
  4. GLYCOPYRROLATE. [Concomitant]
     Active Substance: GLYCOPYRROLATE
     Indication: GASTROSTOMY
     Route: 065
  5. SYNAGIS [Suspect]
     Active Substance: PALIVIZUMAB
     Indication: FACIAL PARALYSIS
     Route: 030
     Dates: end: 20161212
  6. ALBUTEROL. [Concomitant]
     Active Substance: ALBUTEROL
     Indication: RESPIRATORY DISORDER
     Dosage: AS REQUIRED
     Route: 065

REACTIONS (3)
  - Product use issue [Unknown]
  - Respiratory disorder [Unknown]
  - Off label use [Unknown]
